FAERS Safety Report 24604071 (Version 1)
Quarter: 2024Q4

REPORT INFORMATION
  Report Type: Report from Study
  Country: IT (occurrence: IT)
  Receive Date: 20241111
  Receipt Date: 20241111
  Transmission Date: 20250115
  Serious: Yes (Hospitalization)
  Sender: PFIZER
  Company Number: None

PATIENT
  Age: 11 Year
  Sex: Male
  Weight: 51 kg

DRUGS (3)
  1. DOXORUBICIN HYDROCHLORIDE [Suspect]
     Active Substance: DOXORUBICIN HYDROCHLORIDE
     Dosage: 55 MG IN 24-HOUR INFUSION FOR TWO CONSECUTIVE DAYS
     Route: 042
     Dates: start: 20240927, end: 20240929
  2. VINCRISTINE [Suspect]
     Active Substance: VINCRISTINE
     Indication: Ewing^s sarcoma
     Dosage: 2 MG E.V. IN PUSH
     Route: 042
     Dates: start: 20240927, end: 20240927
  3. CYCLOPHOSPHAMIDE [Suspect]
     Active Substance: CYCLOPHOSPHAMIDE
     Dosage: 1800 MG
     Route: 042
     Dates: start: 20240927, end: 20240927

REACTIONS (1)
  - Febrile bone marrow aplasia [Recovered/Resolved]

NARRATIVE: CASE EVENT DATE: 20241011
